FAERS Safety Report 8361178-0 (Version None)
Quarter: 2012Q2

REPORT INFORMATION
  Report Type: 
  Country: None (occurrence: None)
  Receive Date: 20120514
  Receipt Date: 20120503
  Transmission Date: 20120825
  Serious: Yes (Other)
  Sender: FDA-Public Use
  Company Number: 2012SP023932

PATIENT
  Age: 16 Year
  Sex: Female
  Weight: 58.0604 kg

DRUGS (1)
  1. IMPLANON [Suspect]
     Indication: CONTRACEPTION
     Dosage: 1 DF; SBDE
     Route: 059
     Dates: start: 20120101, end: 20120501

REACTIONS (3)
  - BLINDNESS UNILATERAL [None]
  - RETINAL ARTERY THROMBOSIS [None]
  - RETINAL VEIN THROMBOSIS [None]
